FAERS Safety Report 7388703-0 (Version None)
Quarter: 2011Q2

REPORT INFORMATION
  Report Type: 
  Country: None (occurrence: None)
  Receive Date: 20110401
  Receipt Date: 20110328
  Transmission Date: 20111010
  Serious: Yes (Hospitalization)
  Sender: FDA-Public Use
  Company Number: IT-BRISTOL-MYERS SQUIBB COMPANY-15641400

PATIENT
  Age: 75 Year
  Sex: Male

DRUGS (4)
  1. COUMADIN [Suspect]
     Indication: ANTICOAGULANT THERAPY
     Dosage: 1DF:1 UNIT
     Route: 048
     Dates: start: 20110202, end: 20110301
  2. DEURSIL [Concomitant]
     Dosage: CAPS
  3. NORMIX [Concomitant]
     Dosage: FILM COATED TABS
  4. FERLIXIT [Concomitant]
     Dosage: 1DF=62.5MG/5ML SOLUTION FOR ORAL AND INTRAVENOUS.

REACTIONS (3)
  - HEMIPLEGIA [None]
  - HEMIPARESIS [None]
  - HEPATIC CIRRHOSIS [None]
